FAERS Safety Report 17338846 (Version 1)
Quarter: 2020Q1

REPORT INFORMATION
  Report Type: Spontaneous
  Country: US (occurrence: US)
  Receive Date: 20200129
  Receipt Date: 20200129
  Transmission Date: 20200409
  Serious: Yes (Other)
  Sender: FDA-Public Use
  Company Number: US-HQ-000004

PATIENT
  Age: 59 Year
  Sex: Female

DRUGS (2)
  1. LINEZOLID. [Suspect]
     Active Substance: LINEZOLID
     Indication: STAPHYLOCOCCAL INFECTION
     Route: 042
  2. WARFARIN [Interacting]
     Active Substance: WARFARIN
     Indication: EMBOLISM VENOUS
     Route: 065

REACTIONS (7)
  - Septic shock [Recovering/Resolving]
  - Anticoagulation drug level above therapeutic [Recovering/Resolving]
  - Lactic acidosis [Recovering/Resolving]
  - Hypoglycaemia [Recovered/Resolved]
  - Transaminases abnormal [Recovering/Resolving]
  - Thrombocytopenia [Recovering/Resolving]
  - Drug interaction [Recovering/Resolving]
